FAERS Safety Report 14831786 (Version 1)
Quarter: 2018Q2

REPORT INFORMATION
  Report Type: Spontaneous
  Country: US (occurrence: US)
  Receive Date: 20180415
  Receipt Date: 20180415
  Transmission Date: 20180711
  Serious: Yes (Disabling)
  Sender: FDA-Public Use
  Company Number: None

PATIENT
  Age: 57 Year
  Sex: Female
  Weight: 63 kg

DRUGS (3)
  1. ALIVE MULTIVITAMIN [Concomitant]
  2. CITRICAL [Concomitant]
     Active Substance: CALCIUM CITRATE
  3. ESOMEPRAZOLE MAGNESIUM 40MG [Suspect]
     Active Substance: ESOMEPRAZOLE MAGNESIUM
     Indication: GASTROOESOPHAGEAL REFLUX DISEASE
     Dosage: ?          QUANTITY:30 CAPSULE(S);?
     Route: 048
     Dates: start: 20180226, end: 20180412

REACTIONS (5)
  - Thoracic outlet syndrome [None]
  - Hypoaesthesia [None]
  - Neuropathy peripheral [None]
  - Paraesthesia [None]
  - Vitamin B12 deficiency [None]

NARRATIVE: CASE EVENT DATE: 20180404
